FAERS Safety Report 7522428-3 (Version None)
Quarter: 2011Q2

REPORT INFORMATION
  Report Type: 
  Country: None (occurrence: None)
  Receive Date: 20110525
  Receipt Date: 20110509
  Transmission Date: 20111010
  Serious: Yes (Disabling, Other)
  Sender: FDA-Public Use
  Company Number: ALA_02735_2011

PATIENT
  Sex: Female
  Weight: 82.1011 kg

DRUGS (88)
  1. VYTORIN [Concomitant]
  2. LUNESTA [Concomitant]
  3. LANTUS [Concomitant]
  4. LIPITOR [Concomitant]
  5. CYMBALTA [Concomitant]
  6. PREMARIN [Concomitant]
  7. CARTIA XT [Concomitant]
  8. COLACE [Concomitant]
  9. NEURONTIN [Concomitant]
  10. REPLIVA [Concomitant]
  11. PROMETHAZINE [Concomitant]
  12. DULCOLAX [Concomitant]
  13. QUESTRAN [Concomitant]
  14. ZOLOFT [Concomitant]
  15. BETA BLOCKING AGENTS [Concomitant]
  16. LEXAPRO [Concomitant]
  17. GLUCOPHAGE [Concomitant]
  18. GLUCOTROL [Concomitant]
  19. PROTONIX [Concomitant]
  20. PROTON PUMP INHIBITORS [Concomitant]
  21. FLONASE [Concomitant]
  22. MECLIZINE HCL [Concomitant]
  23. MIRALAX /00754501/ [Concomitant]
  24. MERIDIA [Concomitant]
  25. BROMPHENIRAMINE MALEATE + PSEUDOEPHEDRINE HCL [Concomitant]
  26. ADALAT [Concomitant]
  27. ACTONEL [Concomitant]
  28. METOPROLOL [Concomitant]
  29. MECLIZINE HCL [Concomitant]
  30. DAILY MULTIVITAMIN [Concomitant]
  31. ASPIRIN [Concomitant]
  32. PREVACID [Concomitant]
  33. ACCOLATE [Concomitant]
  34. ROZEREM [Concomitant]
  35. REGLAN [Suspect]
     Indication: GASTROOESOPHAGEAL REFLUX DISEASE
     Dosage: SEE IMAGE
     Route: 048
     Dates: start: 20040206, end: 20040308
  36. REGLAN [Suspect]
     Indication: GASTROOESOPHAGEAL REFLUX DISEASE
     Dosage: SEE IMAGE
     Route: 048
     Dates: start: 20081111, end: 20081221
  37. REGLAN [Suspect]
     Indication: GASTROOESOPHAGEAL REFLUX DISEASE
     Dosage: SEE IMAGE
     Route: 048
     Dates: start: 20030717
  38. REGLAN [Suspect]
     Indication: GASTROOESOPHAGEAL REFLUX DISEASE
     Dosage: SEE IMAGE
     Route: 048
     Dates: start: 20050919, end: 20050927
  39. REGLAN [Suspect]
     Indication: GASTROOESOPHAGEAL REFLUX DISEASE
     Dosage: SEE IMAGE
     Route: 048
     Dates: start: 19990810
  40. REGLAN [Suspect]
     Indication: GASTROOESOPHAGEAL REFLUX DISEASE
     Dosage: SEE IMAGE
     Route: 048
     Dates: start: 20070912, end: 20070912
  41. REGLAN [Suspect]
     Indication: GASTROOESOPHAGEAL REFLUX DISEASE
     Dosage: SEE IMAGE
     Route: 048
     Dates: start: 20081108, end: 20081218
  42. REGLAN [Suspect]
     Indication: GASTROOESOPHAGEAL REFLUX DISEASE
     Dosage: SEE IMAGE
     Route: 048
     Dates: start: 20060821, end: 20071201
  43. LYRICA [Concomitant]
  44. VITAMIN D [Concomitant]
  45. AGENTS ACTING ON THE RENIN-ANGIOTENSIN SYSTEM [Concomitant]
  46. PHENAZOPYRIDINE HCL TAB [Concomitant]
  47. DIOVAN HCT [Concomitant]
  48. PROTONIX [Concomitant]
  49. CALCIUM CARBONATE [Concomitant]
  50. ACTIGALL [Concomitant]
  51. NIFEREX /00198301/ [Concomitant]
  52. VITAMIN E /01552201/ [Concomitant]
  53. SIMVASTATIN [Concomitant]
  54. CELEBREX [Concomitant]
  55. AMBIEN [Concomitant]
  56. GABAPENTIN [Concomitant]
  57. CITRACAL-D [Concomitant]
  58. LESCOL [Concomitant]
  59. CARDIZEM [Concomitant]
  60. AVELOX [Concomitant]
  61. VIOKASE /00014701/ [Concomitant]
  62. ESCITALOPRAM [Concomitant]
  63. CIMETIDINE [Concomitant]
  64. CELEXA [Concomitant]
  65. ISOSORBIDE MONONITRATE [Concomitant]
  66. ZOCOR [Concomitant]
  67. FERROUS SULFATE TAB [Concomitant]
  68. MILK OF MAGNESIA TAB [Concomitant]
  69. PHENERGAN /00033001/ [Concomitant]
  70. NIZATIDINE [Concomitant]
  71. ALFENTANYL [Concomitant]
  72. AXID /00867101/ [Concomitant]
  73. LODINE [Concomitant]
  74. AMLODIPINE BESYLATE [Concomitant]
  75. PROCHLORPERAZINE TAB [Concomitant]
  76. LORAZEPAM [Concomitant]
  77. XENICAL [Concomitant]
  78. TOPROL-XL [Concomitant]
  79. GLIPIZIDE [Concomitant]
  80. ALBUTEROL [Concomitant]
  81. LEVAQUIN [Concomitant]
  82. DIPHENHYDRAMINE HCL [Concomitant]
  83. AMICIPROX [Concomitant]
  84. IMDUR [Concomitant]
  85. IBUPROFEN [Concomitant]
  86. TOPAMAX [Concomitant]
  87. METFORMIN HCL [Concomitant]
  88. CLARITIN /00917501/ [Concomitant]

REACTIONS (24)
  - EXTRAPYRAMIDAL DISORDER [None]
  - ECONOMIC PROBLEM [None]
  - CORONARY ARTERY DISEASE [None]
  - CARDIAC FLUTTER [None]
  - EAR PAIN [None]
  - MEMORY IMPAIRMENT [None]
  - NAUSEA [None]
  - HEADACHE [None]
  - DYSKINESIA [None]
  - EMOTIONAL DISORDER [None]
  - DYSPNOEA [None]
  - TARDIVE DYSKINESIA [None]
  - CHEST PAIN [None]
  - PAIN IN EXTREMITY [None]
  - SACCADIC EYE MOVEMENT [None]
  - CHOREA [None]
  - DIZZINESS [None]
  - VISION BLURRED [None]
  - GRIMACING [None]
  - DYSPHAGIA [None]
  - GLABELLAR REFLEX ABNORMAL [None]
  - COGNITIVE DISORDER [None]
  - TEMPOROMANDIBULAR JOINT SYNDROME [None]
  - DISTURBANCE IN ATTENTION [None]
